FAERS Safety Report 5211154-1 (Version None)
Quarter: 2006Q4

REPORT INFORMATION
  Report Type: 
  Country: None (occurrence: None)
  Receive Date: 20061114
  Receipt Date: 20060818
  Transmission Date: 20070319
  Serious: No
  Sender: FDA-Public Use
  Company Number: S06-USA-03410-01

PATIENT
  Sex: Female

DRUGS (5)
  1. NAMENDA [Suspect]
     Dosage: 10 MG QAM PO
     Route: 048
  2. NAMENDA [Suspect]
     Dosage: 5 MG QHS PO
     Route: 048
  3. RAZADYNE [Concomitant]
  4. CITRACAL (CALCIUM CITRATE) [Concomitant]
  5. IRON [Concomitant]

REACTIONS (1)
  - POLLAKIURIA [None]
